FAERS Safety Report 8989118 (Version 1)
Quarter: 2012Q4

REPORT INFORMATION
  Report Type: Report from Study
  Country: JP (occurrence: JP)
  Receive Date: 20121228
  Receipt Date: 20121228
  Transmission Date: 20130627
  Serious: Yes (Death, Other)
  Sender: FDA-Public Use
  Company Number: PHHY2012JP120548

PATIENT
  Age: 53 Year
  Sex: Female
  Weight: 59 kg

DRUGS (3)
  1. AFINITOR [Suspect]
     Indication: METASTATIC RENAL CELL CARCINOMA
     Dosage: 10 mg, daily
     Route: 048
     Dates: start: 20101019, end: 20101027
  2. AFINITOR [Suspect]
     Dosage: 10 mg, daily
     Route: 048
     Dates: start: 20101029
  3. AFINITOR [Suspect]
     Dosage: 10 mg, daily
     Route: 048
     Dates: start: 20101201, end: 20101210

REACTIONS (3)
  - Malignant neoplasm progression [Fatal]
  - Metastatic renal cell carcinoma [Fatal]
  - C-reactive protein increased [Unknown]
